FAERS Safety Report 7469810 (Version 6)
Quarter: 2015Q4

REPORT INFORMATION
  Report Type: Spontaneous
  Country: US (occurrence: US)
  Receive Date: 20100713
  Receipt Date: 20151221
  Transmission Date: 20160305
  Serious: Yes (Hospitalization, Other)
  Sender: FDA-Public Use
  Company Number: US-BAYER-201027410NA

PATIENT
  Age: 42 Year
  Sex: Female
  Weight: 98 kg

DRUGS (10)
  1. LISINOPRIL. [Concomitant]
     Active Substance: LISINOPRIL
     Indication: HYPERTENSION
     Dosage: 20 MG, UNK
     Route: 048
  2. CALCIUM CARBONATE. [Concomitant]
     Active Substance: CALCIUM CARBONATE
     Indication: PERIPHERAL ARTERY THROMBOSIS
  3. YAZ [Suspect]
     Active Substance: DROSPIRENONE\ETHINYL ESTRADIOL
     Indication: ORAL CONTRACEPTION
     Route: 048
     Dates: start: 200711, end: 200806
  4. METOPROLOL [Concomitant]
     Active Substance: METOPROLOL
  5. MEPERIDINE [Concomitant]
     Active Substance: MEPERIDINE
  6. ONDANSETRON [Concomitant]
     Active Substance: ONDANSETRON
  7. ESOMEPRAZOLE [Concomitant]
     Active Substance: ESOMEPRAZOLE
  8. HYDROCODONE [Concomitant]
     Active Substance: HYDROCODONE
  9. YASMIN [Suspect]
     Active Substance: DROSPIRENONE\ETHINYL ESTRADIOL
     Route: 048
  10. POTASSIUM CHLORIDE. [Concomitant]
     Active Substance: POTASSIUM CHLORIDE

REACTIONS (3)
  - Peripheral artery thrombosis [None]
  - Thrombosis [None]
  - Embolism arterial [None]

NARRATIVE: CASE EVENT DATE: 200806
